FAERS Safety Report 23453098 (Version 1)
Quarter: 2024Q1

REPORT INFORMATION
  Report Type: Spontaneous
  Country: US (occurrence: US)
  Receive Date: 20240129
  Receipt Date: 20240129
  Transmission Date: 20240410
  Serious: Yes (Hospitalization, Other)
  Sender: FDA-Public Use
  Company Number: US-SUN PHARMACEUTICAL INDUSTRIES LTD-2024R1-428804

PATIENT
  Age: 1 Month
  Sex: Male

DRUGS (7)
  1. CALCITRIOL [Suspect]
     Active Substance: CALCITRIOL
     Indication: Hypocalcaemia
     Dosage: 0.25 MICROGRAM, DAILY
     Route: 065
  2. CALCIUM [Suspect]
     Active Substance: CALCIUM
     Dosage: 80 MILLIGRAM/KILOGRAM, DAILY
     Route: 042
  3. CALCIUM [Suspect]
     Active Substance: CALCIUM
     Indication: Hypocalcaemia
  4. CALCIUM [Suspect]
     Active Substance: CALCIUM
  5. VITAMIN D [Suspect]
     Active Substance: VITAMIN D NOS
     Dosage: 2000 UNITS FOR 6-12 WEEKS
     Route: 065
  6. VITAMIN D [Suspect]
     Active Substance: VITAMIN D NOS
     Indication: Hypocalcaemia
  7. VITAMIN D [Suspect]
     Active Substance: VITAMIN D NOS

REACTIONS (3)
  - Arrhythmia [Unknown]
  - Sepsis [Unknown]
  - Renal tubular necrosis [Unknown]
